FAERS Safety Report 6039573-4 (Version None)
Quarter: 2009Q1

REPORT INFORMATION
  Report Type: 
  Country: None (occurrence: None)
  Receive Date: 20090116
  Receipt Date: 20090113
  Transmission Date: 20090719
  Serious: Yes (Life-Threatening, Hospitalization)
  Sender: FDA-Public Use
  Company Number: US-JNJFOC-20090102359

PATIENT
  Age: 48 Year
  Sex: Female

DRUGS (8)
  1. ULTRAM [Suspect]
     Indication: DRUG USE FOR UNKNOWN INDICATION
     Route: 048
  2. CYCLOBENZAPRINE HCL [Concomitant]
  3. GASTROINTESTINAL PREPARATION [Concomitant]
  4. HYDROCHLOROTHIAZIDE [Concomitant]
  5. ANTICONVULSANT [Concomitant]
  6. ATENOLOL [Concomitant]
  7. CLONIDINE [Concomitant]
  8. VALPROIC ACID [Concomitant]

REACTIONS (5)
  - DISORIENTATION [None]
  - HYPOTENSION [None]
  - OVERDOSE [None]
  - RESPIRATORY DEPRESSION [None]
  - SOMNOLENCE [None]
